FAERS Safety Report 9736507 (Version 1)
Quarter: 2013Q4

REPORT INFORMATION
  Report Type: Spontaneous
  Country: FR (occurrence: FR)
  Receive Date: 20131206
  Receipt Date: 20131206
  Transmission Date: 20140711
  Serious: Yes (Other)
  Sender: FDA-Public Use
  Company Number: FR-TEVA-446974ISR

PATIENT
  Age: 52 Year
  Sex: Male

DRUGS (11)
  1. METFORMINE TEVA [Suspect]
     Route: 048
     Dates: start: 200901
  2. PRAVADUAL [Suspect]
     Dosage: 1 DOSAGE FORMS DAILY;
     Route: 048
     Dates: start: 200901, end: 201301
  3. PRAVADUAL [Suspect]
     Route: 048
     Dates: start: 201309
  4. RAMIPRIL BIOGARAN 10MG [Suspect]
     Dosage: 1 DOSAGE FORMS DAILY;
     Dates: start: 200901
  5. PROCORALAN [Suspect]
     Dosage: 1 DOSAGE FORMS DAILY;
     Route: 048
     Dates: start: 200901
  6. EZETROL 10MG [Suspect]
     Dosage: 1 DOSAGE FORMS DAILY;
     Route: 048
     Dates: start: 200901, end: 201309
  7. VERAPAMIL BIOGARAN L.P 240MG [Suspect]
     Dosage: 1 DOSAGE FORMS DAILY;
     Dates: start: 200901
  8. NOVONORM [Suspect]
     Dosage: 1 DOSAGE FORMS DAILY;
     Route: 048
     Dates: start: 200901
  9. NOVORAPID [Suspect]
     Route: 058
     Dates: start: 200901
  10. LEVEMIR [Suspect]
     Route: 058
     Dates: start: 200901
  11. ASPIRINE [Concomitant]
     Dates: end: 2013

REACTIONS (1)
  - Alopecia [Not Recovered/Not Resolved]
